FAERS Safety Report 5729299-6 (Version None)
Quarter: 2008Q2

REPORT INFORMATION
  Report Type: 
  Country: None (occurrence: None)
  Receive Date: 20080506
  Receipt Date: 20080424
  Transmission Date: 20081010
  Serious: Yes (Hospitalization)
  Sender: FDA-Public Use
  Company Number: US-PFIZER INC-2008036083

PATIENT
  Sex: Female
  Weight: 77.6 kg

DRUGS (11)
  1. SU-011,248 [Suspect]
     Indication: BREAST CANCER METASTATIC
     Route: 048
     Dates: start: 20080403, end: 20080417
  2. PACLITAXEL [Suspect]
     Indication: BREAST CANCER METASTATIC
     Route: 042
     Dates: start: 20080403, end: 20080416
  3. MICARDIS HCT [Concomitant]
     Route: 048
  4. DEXAMETHASONE [Concomitant]
     Route: 042
     Dates: start: 20080410, end: 20080410
  5. BENADRYL [Concomitant]
     Route: 042
     Dates: start: 20080410, end: 20080410
  6. FAMOTIDINE [Concomitant]
     Route: 042
     Dates: start: 20080410, end: 20080410
  7. ZOFRAN [Concomitant]
     Route: 042
     Dates: start: 20080410, end: 20080410
  8. DEXAMETHASONE [Concomitant]
     Route: 042
     Dates: start: 20080416, end: 20080416
  9. BENADRYL [Concomitant]
     Route: 042
     Dates: start: 20080416, end: 20080416
  10. FAMOTIDINE [Concomitant]
     Route: 042
     Dates: start: 20080416, end: 20080416
  11. ZOFRAN [Concomitant]
     Route: 042
     Dates: start: 20080416, end: 20080416

REACTIONS (1)
  - ATRIAL FIBRILLATION [None]
